FAERS Safety Report 10273616 (Version 2)
Quarter: 2014Q3

REPORT INFORMATION
  Report Type: Spontaneous
  Country: FR (occurrence: None)
  Receive Date: 20140630
  Receipt Date: 20140707
  Transmission Date: 20150326
  Serious: Yes (Hospitalization)
  Sender: FDA-Public Use
  Company Number: FK201402526

PATIENT
  Age: 22 Year
  Sex: Female
  Weight: 87 kg

DRUGS (5)
  1. SUFFENTANIL (SUFENTANIL) [Concomitant]
  2. HYDROXYZINE (HYDROXYZINE) [Concomitant]
     Active Substance: HYDROXYZINE HYDROCHLORIDE
  3. KETAMINE (KETAMINE) [Concomitant]
     Active Substance: KETAMINE
  4. ROCURONIUM (MANUFACTURER UNKNOWN) (ROCURONIUM) (ROCURONIUM) [Suspect]
     Active Substance: ROCURONIUM BROMIDE
     Indication: INDUCTION AND MAINTENANCE OF ANAESTHESIA
     Dosage: (NOT OTHERWISE SPECIFIED)
     Route: 042
  5. PROPOFOL (PROPOFOL) [Concomitant]
     Active Substance: PROPOFOL

REACTIONS (1)
  - Anaphylactic reaction [None]
